FAERS Safety Report 23481841 (Version 2)
Quarter: 2024Q1

REPORT INFORMATION
  Report Type: Other
  Country: US (occurrence: None)
  Receive Date: 20240205
  Receipt Date: 20240314
  Transmission Date: 20240410
  Serious: Yes (Other)
  Sender: FDA-Public Use
  Company Number: US-ROCHE-3503440

PATIENT
  Age: 73 Year
  Sex: Male

DRUGS (2)
  1. VABYSMO [Suspect]
     Active Substance: FARICIMAB\FARICIMAB-SVOA
     Indication: Neovascular age-related macular degeneration
     Route: 050
  2. POVIDONE-IODINE [Concomitant]
     Active Substance: POVIDONE-IODINE
     Route: 061

REACTIONS (1)
  - Pseudoendophthalmitis [Unknown]
